FAERS Safety Report 4807995-2 (Version None)
Quarter: 2005Q4

REPORT INFORMATION
  Report Type: 
  Country: None (occurrence: None)
  Receive Date: 20051024
  Receipt Date: 20051013
  Transmission Date: 20060501
  Serious: Yes (Hospitalization, Other)
  Sender: FDA-Public Use
  Company Number: US-MERCK-0510USA07412

PATIENT
  Age: 65 Year
  Sex: Male
  Weight: 82 kg

DRUGS (1)
  1. VIOXX [Suspect]
     Indication: ARTHRITIS
     Route: 048
     Dates: end: 20040701

REACTIONS (12)
  - ARTHROPATHY [None]
  - BURNS FIRST DEGREE [None]
  - CORONARY ARTERY DISEASE [None]
  - DIABETES MELLITUS NON-INSULIN-DEPENDENT [None]
  - DYSPNOEA PAROXYSMAL NOCTURNAL [None]
  - HYPERLIPIDAEMIA [None]
  - INSOMNIA [None]
  - INTESTINAL POLYP [None]
  - MYOCARDIAL INFARCTION [None]
  - ORTHOPNOEA [None]
  - ROTATOR CUFF SYNDROME [None]
  - WOUND DEBRIDEMENT [None]
